FAERS Safety Report 20617103 (Version 1)
Quarter: 2022Q1

REPORT INFORMATION
  Report Type: Spontaneous
  Country: US (occurrence: None)
  Receive Date: 20220318
  Receipt Date: 20220318
  Transmission Date: 20220423
  Serious: Yes (Other)
  Sender: FDA-Public Use
  Company Number: None

PATIENT
  Age: 46 Year
  Sex: Female
  Weight: 63.45 kg

DRUGS (10)
  1. OXYCODONE HYDROCHLORIDE [Suspect]
     Active Substance: OXYCODONE HYDROCHLORIDE
     Indication: Intervertebral disc protrusion
     Dosage: OTHER QUANTITY : 1 TABLET(S);?OTHER FREQUENCY : 5X A DAY AS NEEDED;?
     Route: 048
     Dates: start: 20180116
  2. TEN [Concomitant]
  3. IFC [Concomitant]
  4. NMES unit [Concomitant]
  5. NUROTIN [Concomitant]
  6. xanaflex [Concomitant]
  7. OXYCODONE [Concomitant]
     Active Substance: OXYCODONE
  8. Amatryptaline [Concomitant]
  9. MALTEX [Concomitant]
  10. Phenergan [Concomitant]

REACTIONS (6)
  - Vomiting [None]
  - Migraine [None]
  - Manufacturing issue [None]
  - Illness [None]
  - Product quality issue [None]
  - Drug ineffective [None]

NARRATIVE: CASE EVENT DATE: 20220315
